FAERS Safety Report 15715203 (Version 6)
Quarter: 2021Q4

REPORT INFORMATION
  Report Type: Report from Study
  Country: JP (occurrence: JP)
  Receive Date: 20181212
  Receipt Date: 20211223
  Transmission Date: 20220303
  Serious: Yes (Death, Other)
  Sender: FDA-Public Use
  Company Number: JP-MSD-M2018-38391

PATIENT
  Age: 57 Year
  Sex: Female
  Weight: 59 kg

DRUGS (140)
  1. LETERMOVIR [Suspect]
     Active Substance: LETERMOVIR
     Indication: Antiviral prophylaxis
     Dosage: 480 MILLIGRAM, QD
     Route: 048
     Dates: start: 20181001, end: 20181006
  2. LETERMOVIR [Suspect]
     Active Substance: LETERMOVIR
     Dosage: 480 MILLIGRAM, QD
     Route: 048
     Dates: start: 20181010, end: 20181015
  3. CUBICIN [Concomitant]
     Active Substance: DAPTOMYCIN
     Indication: Septic shock
     Dosage: 240 MILLIGRAM
     Route: 051
     Dates: start: 20181010, end: 20181015
  4. BELSOMRA [Concomitant]
     Active Substance: SUVOREXANT
     Indication: Insomnia
     Dosage: INSOMNIA
     Route: 048
     Dates: start: 20181007, end: 20181015
  5. DIAMOX SEQUELS [Concomitant]
     Active Substance: ACETAZOLAMIDE
     Indication: Prophylaxis
     Dosage: 0.50 V
     Route: 051
     Dates: start: 20181010, end: 20181010
  6. MEROPENEM [Concomitant]
     Active Substance: MEROPENEM
     Indication: Disease complication
     Dosage: UNK
     Route: 041
     Dates: start: 20181013, end: 20181015
  7. NOVOLIN R [Concomitant]
     Active Substance: INSULIN HUMAN
     Indication: Disease complication
     Dosage: UNK
     Route: 051
     Dates: start: 20181013, end: 20181015
  8. ACETAMINOPHEN [Concomitant]
     Active Substance: ACETAMINOPHEN
     Indication: Disease complication
     Dosage: 1000.00 MILLIGRAM
     Route: 041
     Dates: start: 20181014, end: 20181014
  9. SODIUM CHLORIDE [Concomitant]
     Active Substance: SODIUM CHLORIDE
     Indication: Prophylaxis
     Dosage: UNK
     Route: 051
     Dates: start: 20181001, end: 20181015
  10. NAFAMOSTAT MESYLATE [Concomitant]
     Active Substance: NAFAMOSTAT MESYLATE
     Indication: Disease complication
     Dosage: 2 V
     Route: 051
     Dates: start: 20181015, end: 20181015
  11. SUBPACK B [Concomitant]
     Indication: Disease complication
     Dosage: 4 B
     Route: 065
     Dates: start: 20181015, end: 20181015
  12. BICANATE [Concomitant]
     Active Substance: CALCIUM CHLORIDE\MAGNESIUM CHLORIDE\POTASSIUM CHLORIDE\SODIUM BICARBONATE\SODIUM CHLORIDE\TRISODIUM
     Indication: Disease complication
     Dosage: 4 B
     Route: 051
     Dates: start: 20181015, end: 20181015
  13. LIMETHASON [DEXAMETHASONE PALMITATE] [Concomitant]
     Indication: Disease complication
     Dosage: 2 A
     Route: 041
     Dates: start: 20181015, end: 20181015
  14. VANCOMYCIN HYDROCHLORIDE [Concomitant]
     Active Substance: VANCOMYCIN HYDROCHLORIDE
     Indication: Disease complication
     Dosage: 3 V
     Route: 041
     Dates: start: 20181015, end: 20181015
  15. ALBUMINAR [Concomitant]
     Active Substance: ALBUMIN HUMAN
     Indication: Disease complication
     Dosage: 1 V
     Route: 051
     Dates: start: 20181015, end: 20181015
  16. MEYLON [Concomitant]
     Active Substance: SODIUM BICARBONATE
     Indication: Disease complication
     Dosage: 1 B
     Route: 041
     Dates: start: 20181015, end: 20181015
  17. NOR ADRENALIN [NOREPINEPHRINE] [Concomitant]
     Indication: Disease complication
     Dosage: 5 A
     Route: 041
     Dates: start: 20181015, end: 20181015
  18. CALCIUM CHLORIDE ANHYDROUS\POTASSIUM CHLORIDE\SODIUM CHLORIDE\SODIUM L [Concomitant]
     Active Substance: CALCIUM CHLORIDE ANHYDROUS\POTASSIUM CHLORIDE\SODIUM CHLORIDE\SODIUM LACTATE
     Dosage: 4 B
     Route: 051
     Dates: start: 20181001, end: 20181001
  19. CALCIUM CHLORIDE ANHYDROUS\POTASSIUM CHLORIDE\SODIUM CHLORIDE\SODIUM L [Concomitant]
     Active Substance: CALCIUM CHLORIDE ANHYDROUS\POTASSIUM CHLORIDE\SODIUM CHLORIDE\SODIUM LACTATE
     Dosage: 2 B
     Route: 051
     Dates: start: 20181002, end: 20181002
  20. SOLDEM 3A [Concomitant]
     Active Substance: CARBOHYDRATES\POTASSIUM CHLORIDE\SODIUM CHLORIDE\SODIUM LACTATE
     Dosage: 4 B
     Route: 051
     Dates: start: 20181001, end: 20181001
  21. SOLDEM 3A [Concomitant]
     Active Substance: CARBOHYDRATES\POTASSIUM CHLORIDE\SODIUM CHLORIDE\SODIUM LACTATE
     Dosage: 3 B
     Route: 051
     Dates: start: 20181002, end: 20181002
  22. SODIUM CHLORIDE [Concomitant]
     Active Substance: SODIUM CHLORIDE
     Dosage: 3 A
     Route: 051
     Dates: start: 20181001, end: 20181001
  23. LASIX [Concomitant]
     Active Substance: FUROSEMIDE
     Dosage: 1.5 A
     Route: 051
     Dates: start: 20181001, end: 20181001
  24. LASIX [Concomitant]
     Active Substance: FUROSEMIDE
     Dosage: 0.50 A
     Route: 051
     Dates: start: 20181002, end: 20181002
  25. LASIX [Concomitant]
     Active Substance: FUROSEMIDE
     Dosage: 1 A
     Route: 051
     Dates: start: 20181003, end: 20181004
  26. LASIX [Concomitant]
     Active Substance: FUROSEMIDE
     Dosage: 0.50 A
     Route: 051
     Dates: start: 20181005, end: 20181005
  27. LASIX [Concomitant]
     Active Substance: FUROSEMIDE
     Dosage: 1.5 A
     Route: 051
     Dates: start: 20181006, end: 20181006
  28. LASIX [Concomitant]
     Active Substance: FUROSEMIDE
     Dosage: 3 A
     Route: 051
     Dates: start: 20181007, end: 20181014
  29. LASIX [Concomitant]
     Active Substance: FUROSEMIDE
     Dosage: 2 A
     Route: 051
     Dates: start: 20181015, end: 20181015
  30. HEPARIN SODIUM [Concomitant]
     Active Substance: HEPARIN SODIUM
     Dosage: 2 A
     Route: 065
     Dates: start: 20181001, end: 20181001
  31. HEPARIN SODIUM [Concomitant]
     Active Substance: HEPARIN SODIUM
     Dosage: 2 A
     Route: 065
     Dates: start: 20181005, end: 20181005
  32. HEPARIN SODIUM [Concomitant]
     Active Substance: HEPARIN SODIUM
     Dosage: 6 A
     Route: 065
     Dates: start: 20181009, end: 20181009
  33. HEPARIN SODIUM [Concomitant]
     Active Substance: HEPARIN SODIUM
     Dosage: 6 A
     Route: 065
     Dates: start: 20181011, end: 20181011
  34. HEPARIN SODIUM [Concomitant]
     Active Substance: HEPARIN SODIUM
     Dosage: 4 A
     Route: 065
     Dates: start: 20181012, end: 20181014
  35. HEPARIN SODIUM [Concomitant]
     Active Substance: HEPARIN SODIUM
     Dosage: 3 A
     Route: 065
     Dates: start: 20181015, end: 20181015
  36. PROGRAF [Concomitant]
     Active Substance: TACROLIMUS
     Indication: Prophylaxis
     Dosage: 0.29 MILLILITER
     Route: 051
     Dates: start: 20181002, end: 20181003
  37. PROGRAF [Concomitant]
     Active Substance: TACROLIMUS
     Dosage: 0.22 MILLILITER
     Route: 051
     Dates: start: 20181004, end: 20181004
  38. PROGRAF [Concomitant]
     Active Substance: TACROLIMUS
     Dosage: 0.12 MILLILITER
     Route: 051
     Dates: start: 20181005, end: 20181005
  39. PROGRAF [Concomitant]
     Active Substance: TACROLIMUS
     Dosage: 0.06 MILLILITER
     Route: 051
     Dates: start: 20181009, end: 20181010
  40. PROGRAF [Concomitant]
     Active Substance: TACROLIMUS
     Dosage: 0.08 MILLILITER
     Route: 051
     Dates: start: 20181011, end: 20181011
  41. PROGRAF [Concomitant]
     Active Substance: TACROLIMUS
     Dosage: 0.10 MILLILITER
     Route: 051
     Dates: start: 20181012, end: 20181012
  42. PROGRAF [Concomitant]
     Active Substance: TACROLIMUS
     Dosage: 0.06 MILLILITER
     Route: 051
     Dates: start: 20181013, end: 20181013
  43. DEXTROSE [Concomitant]
     Active Substance: DEXTROSE
     Dosage: 1B
     Route: 051
     Dates: start: 20181002, end: 20181005
  44. DEXTROSE [Concomitant]
     Active Substance: DEXTROSE
     Dosage: 1B
     Route: 051
     Dates: start: 20181009, end: 20181013
  45. SOLU-CORTEF [Concomitant]
     Active Substance: HYDROCORTISONE SODIUM SUCCINATE
     Indication: Prophylaxis
     Dosage: 2V
     Route: 051
     Dates: start: 20181003, end: 20181003
  46. SOLU-CORTEF [Concomitant]
     Active Substance: HYDROCORTISONE SODIUM SUCCINATE
     Dosage: 2V
     Route: 051
     Dates: start: 20181005, end: 20181005
  47. AMINO ACIDS\DEXTROSE\ELECTROLYTES NOS\MINERALS\VITAMINS [Concomitant]
     Active Substance: AMINO ACIDS\DEXTROSE\ELECTROLYTES NOS\MINERALS\VITAMINS
     Dosage: 2 DOSAGE FORM
     Route: 051
     Dates: start: 20181003, end: 20181006
  48. AMINO ACIDS\DEXTROSE\ELECTROLYTES NOS\MINERALS\VITAMINS [Concomitant]
     Active Substance: AMINO ACIDS\DEXTROSE\ELECTROLYTES NOS\MINERALS\VITAMINS
     Dosage: 3 DOSAGE FORM
     Route: 051
     Dates: start: 20181007, end: 20181007
  49. AMINO ACIDS\DEXTROSE\ELECTROLYTES NOS\MINERALS\VITAMINS [Concomitant]
     Active Substance: AMINO ACIDS\DEXTROSE\ELECTROLYTES NOS\MINERALS\VITAMINS
     Dosage: 1 DOSAGE FORM
     Route: 051
     Dates: start: 20181008, end: 20181008
  50. METHOTREXATE [Concomitant]
     Active Substance: METHOTREXATE
     Indication: Prophylaxis
     Dosage: 15 MILLIGRAM
     Route: 041
     Dates: start: 20181004, end: 20181004
  51. METHOTREXATE [Concomitant]
     Active Substance: METHOTREXATE
     Dosage: 11 MILLIGRAM
     Route: 041
     Dates: start: 20181006, end: 20181006
  52. METHOTREXATE [Concomitant]
     Active Substance: METHOTREXATE
     Dosage: 11 MILLIGRAM
     Route: 041
     Dates: start: 20181009, end: 20181009
  53. FILGRASTIM [Concomitant]
     Active Substance: FILGRASTIM
     Dosage: UNK
     Route: 041
     Dates: start: 20181004, end: 20181015
  54. KCL [Concomitant]
     Active Substance: POTASSIUM CHLORIDE
     Dosage: 2 DOSAGE FORM
     Route: 065
     Dates: start: 20181004, end: 20181007
  55. KCL [Concomitant]
     Active Substance: POTASSIUM CHLORIDE
     Dosage: 4 DOSAGE FORM
     Route: 065
     Dates: start: 20181008, end: 20181008
  56. KCL [Concomitant]
     Active Substance: POTASSIUM CHLORIDE
     Dosage: 6 DOSAGE FORM
     Route: 065
     Dates: start: 20181009, end: 20181009
  57. KCL [Concomitant]
     Active Substance: POTASSIUM CHLORIDE
     Dosage: 4 DOSAGE FORM
     Route: 065
     Dates: start: 20181010, end: 20181010
  58. KCL [Concomitant]
     Active Substance: POTASSIUM CHLORIDE
     Dosage: 8 DOSAGE FORM
     Route: 065
     Dates: start: 20181011, end: 20181011
  59. KCL [Concomitant]
     Active Substance: POTASSIUM CHLORIDE
     Dosage: 10 DOSAGE FORM
     Route: 065
     Dates: start: 20181012, end: 20181013
  60. KCL [Concomitant]
     Active Substance: POTASSIUM CHLORIDE
     Dosage: 4 DOSAGE FORM
     Route: 065
     Dates: start: 20181014, end: 20181014
  61. CEFTRIAXONE SODIUM [Concomitant]
     Active Substance: CEFTRIAXONE SODIUM
     Indication: Prophylaxis
     Dosage: UNK
     Route: 051
     Dates: start: 20181005, end: 20181005
  62. MICAFUNGIN SODIUM [Concomitant]
     Active Substance: MICAFUNGIN SODIUM
     Indication: Prophylaxis
     Dosage: 2V
     Route: 051
     Dates: start: 20181005, end: 20181007
  63. MICAFUNGIN SODIUM [Concomitant]
     Active Substance: MICAFUNGIN SODIUM
     Dosage: 2V
     Route: 051
     Dates: start: 20181013, end: 20181015
  64. ACYCLOVIR [Concomitant]
     Active Substance: ACYCLOVIR
     Indication: Prophylaxis
     Dosage: 2A
     Route: 051
     Dates: start: 20181005, end: 20181007
  65. CEFTAZIDIME [Concomitant]
     Active Substance: CEFTAZIDIME
     Indication: Prophylaxis
     Dosage: 1V
     Route: 051
     Dates: start: 20181005, end: 20181005
  66. CEFTAZIDIME [Concomitant]
     Active Substance: CEFTAZIDIME
     Dosage: 2V
     Route: 051
     Dates: start: 20181006, end: 20181012
  67. CEFTAZIDIME [Concomitant]
     Active Substance: CEFTAZIDIME
     Dosage: 1V
     Route: 051
     Dates: start: 20181013, end: 20181013
  68. SODIUM CHLORIDE [Concomitant]
     Active Substance: SODIUM CHLORIDE
     Dosage: 1 DOSAGE FORM
     Route: 065
     Dates: start: 20181005, end: 20181005
  69. SODIUM CHLORIDE [Concomitant]
     Active Substance: SODIUM CHLORIDE
     Dosage: 1.5 DOSAGE FORM
     Route: 065
     Dates: start: 20181006, end: 20181006
  70. SODIUM CHLORIDE [Concomitant]
     Active Substance: SODIUM CHLORIDE
     Dosage: 1 DOSAGE FORM
     Route: 065
     Dates: start: 20181007, end: 20181007
  71. KENKETU GLOVENIN-I [Concomitant]
     Active Substance: HUMAN IMMUNOGLOBULIN G
     Dosage: 1V
     Route: 041
     Dates: start: 20181005, end: 20181006
  72. KENKETU GLOVENIN-I [Concomitant]
     Active Substance: HUMAN IMMUNOGLOBULIN G
     Dosage: 1V
     Route: 041
     Dates: start: 20181013, end: 20181014
  73. PRECEDEX [Concomitant]
     Active Substance: DEXMEDETOMIDINE HYDROCHLORIDE
     Dosage: 1 CYLINDER
     Route: 051
     Dates: start: 20181005, end: 20181005
  74. PRECEDEX [Concomitant]
     Active Substance: DEXMEDETOMIDINE HYDROCHLORIDE
     Dosage: 2 CYLINDERS
     Route: 051
     Dates: start: 20181006, end: 20181006
  75. PRECEDEX [Concomitant]
     Active Substance: DEXMEDETOMIDINE HYDROCHLORIDE
     Dosage: 1 CYLINDER
     Route: 051
     Dates: start: 20181008, end: 20181015
  76. FENTANYL CITRATE [Concomitant]
     Active Substance: FENTANYL CITRATE
     Indication: Prophylaxis
     Dosage: 2A
     Route: 051
     Dates: start: 20181005, end: 20181006
  77. FENTANYL CITRATE [Concomitant]
     Active Substance: FENTANYL CITRATE
     Dosage: 4A
     Route: 051
     Dates: start: 20181007, end: 20181007
  78. FENTANYL CITRATE [Concomitant]
     Active Substance: FENTANYL CITRATE
     Dosage: 2A
     Route: 051
     Dates: start: 20181008, end: 20181008
  79. FENTANYL CITRATE [Concomitant]
     Active Substance: FENTANYL CITRATE
     Dosage: 4A
     Route: 051
     Dates: start: 20181009, end: 20181010
  80. FENTANYL CITRATE [Concomitant]
     Active Substance: FENTANYL CITRATE
     Dosage: 2A
     Route: 051
     Dates: start: 20181011, end: 20181011
  81. FENTANYL CITRATE [Concomitant]
     Active Substance: FENTANYL CITRATE
     Dosage: 6A
     Route: 051
     Dates: start: 20181012, end: 20181015
  82. HEPARIN [Concomitant]
     Active Substance: HEPARIN SODIUM
     Dosage: 2 MILLILITER
     Route: 041
     Dates: start: 20181005, end: 20181005
  83. HEPARIN [Concomitant]
     Active Substance: HEPARIN SODIUM
     Dosage: 2 MILLILITER
     Route: 041
     Dates: start: 20181009, end: 20181009
  84. HEPARIN [Concomitant]
     Active Substance: HEPARIN SODIUM
     Dosage: 2 MILLILITER
     Route: 041
     Dates: start: 20181011, end: 20181011
  85. HEPARIN [Concomitant]
     Active Substance: HEPARIN SODIUM
     Dosage: 2 MILLILITER
     Route: 041
     Dates: start: 20181014, end: 20181014
  86. HEPARIN [Concomitant]
     Active Substance: HEPARIN SODIUM
     Dosage: 10 MILLILITER
     Route: 041
     Dates: start: 20181015, end: 20181015
  87. LEUCOVORIN [Concomitant]
     Active Substance: LEUCOVORIN
     Dosage: 4A
     Route: 041
     Dates: start: 20181006, end: 20181006
  88. LEUCOVORIN [Concomitant]
     Active Substance: LEUCOVORIN
     Dosage: 8 A
     Route: 041
     Dates: start: 20181007, end: 20181007
  89. LEUCOVORIN [Concomitant]
     Active Substance: LEUCOVORIN
     Dosage: 12A
     Route: 041
     Dates: start: 20181009, end: 20181009
  90. PREDNISOLONE SODIUM SUCCINATE [Concomitant]
     Active Substance: PREDNISOLONE SODIUM SUCCINATE
     Indication: Prophylaxis
     Dosage: 3 A
     Route: 041
     Dates: start: 20181006, end: 20181015
  91. OMEPRAZOLE SODIUM [Concomitant]
     Active Substance: OMEPRAZOLE SODIUM
     Dosage: 2V
     Route: 051
     Dates: start: 20181006, end: 20181007
  92. SODIUM CHLORIDE [Concomitant]
     Active Substance: SODIUM CHLORIDE
     Dosage: 2 CYLINDERS
     Route: 051
     Dates: start: 20181006, end: 20181006
  93. SODIUM CHLORIDE [Concomitant]
     Active Substance: SODIUM CHLORIDE
     Dosage: 3 CYLINDERS
     Route: 051
     Dates: start: 20181007, end: 20181007
  94. SODIUM CHLORIDE [Concomitant]
     Active Substance: SODIUM CHLORIDE
     Dosage: 1 CYLINDER
     Route: 051
     Dates: start: 20181009, end: 20181009
  95. SODIUM CHLORIDE [Concomitant]
     Active Substance: SODIUM CHLORIDE
     Dosage: 1 CYLINDER
     Route: 051
     Dates: start: 20181014, end: 20181014
  96. PRIMPERAN [Concomitant]
     Active Substance: METOCLOPRAMIDE HYDROCHLORIDE
     Dosage: 1A
     Route: 041
     Dates: start: 20181006, end: 20181006
  97. AMITIZA [Concomitant]
     Active Substance: LUBIPROSTONE
     Dosage: 4 DOSAGE FORM/DAILY (BID, AFTER MORNING AND EVENING MEALS)
     Route: 048
     Dates: start: 20181001, end: 20181001
  98. AMITIZA [Concomitant]
     Active Substance: LUBIPROSTONE
     Dosage: 2 DOSAGE FORM/DAILY (BID, AFTER MORNING AND EVENING MEALS)
     Route: 048
     Dates: start: 20181002, end: 20181014
  99. LANSOPRAZOLE [Concomitant]
     Active Substance: LANSOPRAZOLE
     Dosage: 2 DOSAGE FORM, QD (AFTER BREAKFAST)
     Route: 048
     Dates: start: 20181001, end: 20181001
  100. LANSOPRAZOLE [Concomitant]
     Active Substance: LANSOPRAZOLE
     Dosage: 1 DOSAGE FORM, QD (AFTER BREAKFAST)
     Route: 048
     Dates: start: 20181002, end: 20181014
  101. FLUCONAZOLE [Concomitant]
     Active Substance: FLUCONAZOLE
     Indication: Prophylaxis
     Dosage: 4 DOSAGE FORM, QD(AFTER BREAKFAST)
     Route: 048
     Dates: start: 20181001, end: 20181001
  102. FLUCONAZOLE [Concomitant]
     Active Substance: FLUCONAZOLE
     Dosage: 2 DOSAGE FORM, QD(AFTER BREAKFAST)
     Route: 048
     Dates: start: 20181002, end: 20181006
  103. FLUCONAZOLE [Concomitant]
     Active Substance: FLUCONAZOLE
     Dosage: 4 DOSAGE FORM, QD(AFTER BREAKFAST)
     Route: 048
     Dates: start: 20181007, end: 20181008
  104. FLUCONAZOLE [Concomitant]
     Active Substance: FLUCONAZOLE
     Dosage: 2 DOSAGE FORM, QD(AFTER BREAKFAST)
     Route: 048
     Dates: start: 20181009, end: 20181014
  105. METHYLCOBALAMIN [Concomitant]
     Active Substance: METHYLCOBALAMIN
     Dosage: 6 DOSAGE FORM/DAY (TID, AFTER EACH MEAL)
     Route: 048
     Dates: start: 20181001, end: 20181001
  106. METHYLCOBALAMIN [Concomitant]
     Active Substance: METHYLCOBALAMIN
     Dosage: 3 DOSAGE FORM/DAY (TID, AFTER EACH MEAL)
     Route: 048
     Dates: start: 20181002, end: 20181014
  107. URSODIOL [Concomitant]
     Active Substance: URSODIOL
     Dosage: 12 DOSAGE FORM/DAY (TID, AFTER EACH MEAL)
     Route: 048
     Dates: start: 20181001, end: 20181001
  108. URSODIOL [Concomitant]
     Active Substance: URSODIOL
     Dosage: 6 DOSAGE FORM/DAY (TID, AFTER EACH MEAL)
     Route: 048
     Dates: start: 20181002, end: 20181006
  109. URSODIOL [Concomitant]
     Active Substance: URSODIOL
     Dosage: 12 DOSAGE FORM/DAY (TID, AFTER EACH MEAL)
     Route: 048
     Dates: start: 20181007, end: 20181008
  110. URSODIOL [Concomitant]
     Active Substance: URSODIOL
     Dosage: 6 DOSAGE FORM/DAY (TID, AFTER EACH MEAL)
     Route: 048
     Dates: start: 20181009, end: 20181014
  111. LEVOFLOXACIN HEMIHYDRATE [Concomitant]
     Active Substance: LEVOFLOXACIN
     Indication: Prophylaxis
     Dosage: 2 DOSAGE FORM, HS
     Route: 048
     Dates: start: 20181001, end: 20181001
  112. LEVOFLOXACIN HEMIHYDRATE [Concomitant]
     Active Substance: LEVOFLOXACIN
     Dosage: 1 DOSAGE FORM, HS
     Route: 048
     Dates: start: 20181002, end: 20181014
  113. LACTOBACILLUS CASEI [Concomitant]
     Active Substance: LACTOBACILLUS CASEI
     Dosage: 3 PACKS/DAY (TID, AFTER EACH MEAL)
     Route: 048
     Dates: start: 20181001, end: 20181001
  114. ZYPREXA [Concomitant]
     Active Substance: OLANZAPINE
     Dosage: 2 DOSAGE FORM, QD(AFTER LUNCH)
     Route: 048
     Dates: start: 20181001, end: 20181001
  115. ZYPREXA [Concomitant]
     Active Substance: OLANZAPINE
     Dosage: 1 DOSAGE FORM, QD(AFTER LUNCH)
     Route: 048
     Dates: start: 20181002, end: 20181014
  116. ACYCLOVIR [Concomitant]
     Active Substance: ACYCLOVIR
     Indication: Prophylaxis
     Dosage: 10 DOSAGE FORM/DAILY(5 TIMES PER DAY, RIGHT AFTER WAKING UP, AFTER EACH MEAL, HS)
     Route: 048
     Dates: start: 20181001, end: 20181001
  117. ACYCLOVIR [Concomitant]
     Active Substance: ACYCLOVIR
     Dosage: 5 DOSAGE FORM/DAILY(5 TIMES PER DAY, RIGHT AFTER WAKING UP, AFTER EACH MEAL, HS)
     Route: 048
     Dates: start: 20181002, end: 20181006
  118. ACYCLOVIR [Concomitant]
     Active Substance: ACYCLOVIR
     Dosage: 10 DOSAGE FORM/DAILY(5 TIMES PER DAY, RIGHT AFTER WAKING UP, AFTER EACH MEAL, HS)
     Route: 048
     Dates: start: 20181007, end: 20181008
  119. ACYCLOVIR [Concomitant]
     Active Substance: ACYCLOVIR
     Dosage: 5 DOSAGE FORM/DAILY(5 TIMES PER DAY, RIGHT AFTER WAKING UP, AFTER EACH MEAL, HS)
     Route: 048
     Dates: start: 20181009, end: 20181014
  120. MAGNESIUM OXIDE [Concomitant]
     Active Substance: MAGNESIUM OXIDE
     Dosage: 6 DOSAGE FORM/DAILY(TID, AFTER EACH MEAL)
     Route: 048
     Dates: start: 20181001, end: 20181001
  121. MAGNESIUM OXIDE [Concomitant]
     Active Substance: MAGNESIUM OXIDE
     Dosage: 3 DOSAGE FORM/DAILY(TID, AFTER EACH MEAL)
     Route: 048
     Dates: start: 20211002, end: 20211014
  122. HERBALS [Concomitant]
     Active Substance: HERBALS
     Dosage: 6 PACKS/DAILY(TID, BEFORE EACH MEAL)
     Route: 048
     Dates: start: 20181001, end: 20181004
  123. HERBALS [Concomitant]
     Active Substance: HERBALS
     Dosage: 3 PACKS/DAILY(TID, BEFORE EACH MEAL)
     Route: 048
     Dates: start: 20181005, end: 20181011
  124. MIYA-BM [Concomitant]
     Active Substance: CLOSTRIDIUM BUTYRICUM SPORES STRAIN M-55
     Dosage: 6 DOSAGE FORM/DAILY(TID, AFTER EACH MEAL)
     Route: 048
     Dates: start: 20181001, end: 20181001
  125. MIYA-BM [Concomitant]
     Active Substance: CLOSTRIDIUM BUTYRICUM SPORES STRAIN M-55
     Dosage: 3 DOSAGE FORM/DAILY(TID, AFTER EACH MEAL)
     Route: 048
     Dates: start: 20181002, end: 20181014
  126. POSTERISAN FORTE [ESCHERICHIA COLI;HYDROCORTISONE] [Concomitant]
     Dosage: UNK GRAM
     Dates: start: 20181002, end: 20181002
  127. ROZEREM [Concomitant]
     Active Substance: RAMELTEON
     Indication: Insomnia
     Dosage: 1 DOSAGE FORM, INSOMNIA
     Route: 048
     Dates: start: 20181007, end: 20181011
  128. ROZEREM [Concomitant]
     Active Substance: RAMELTEON
     Dosage: 2 DOSAGE FORM, DURING INSOMNIA
     Route: 048
     Dates: start: 20181012, end: 20181015
  129. DEXAMETHASONE [Concomitant]
     Active Substance: DEXAMETHASONE
     Indication: Prophylaxis
     Dosage: UNK UNK, PRN
     Route: 065
     Dates: start: 20181010, end: 20181010
  130. DEXAMETHASONE [Concomitant]
     Active Substance: DEXAMETHASONE
     Dosage: UNK UNK, PRN
     Route: 065
     Dates: start: 20181012, end: 20181012
  131. CYCLOPHOSPHAMIDE [Concomitant]
     Active Substance: CYCLOPHOSPHAMIDE
     Indication: Prophylaxis
     Dosage: 1500.00 MILLIGRAM
     Route: 051
     Dates: start: 20181001, end: 20181001
  132. CYCLOPHOSPHAMIDE [Concomitant]
     Active Substance: CYCLOPHOSPHAMIDE
     Dosage: 90 MILLIGRAM
     Route: 051
     Dates: start: 20181001, end: 20181001
  133. MESNA [Concomitant]
     Active Substance: MESNA
     Dosage: 4.5 A
     Route: 051
     Dates: start: 20181001, end: 20181001
  134. RAMOSETRON HYDROCHLORIDE [Concomitant]
     Active Substance: RAMOSETRON HYDROCHLORIDE
     Dosage: 1 A
     Route: 051
     Dates: start: 20181001, end: 20181001
  135. FLUDARA [Concomitant]
     Active Substance: FLUDARABINE PHOSPHATE
     Dosage: 40 MILLIGRAM
     Route: 051
     Dates: start: 20181001, end: 20181001
  136. WATER FOR INJECTION [Concomitant]
     Active Substance: WATER
     Dosage: 0.13 A
     Route: 051
     Dates: start: 20181001, end: 20181001
  137. WATER FOR INJECTION [Concomitant]
     Active Substance: WATER
     Dosage: 0.50 A
     Route: 051
     Dates: start: 20181010, end: 20181010
  138. WATER FOR INJECTION [Concomitant]
     Active Substance: WATER
     Dosage: 1 A
     Route: 051
     Dates: start: 20181015, end: 20181015
  139. DEXAMETHASONE SODIUM PHOSPHATE [Concomitant]
     Active Substance: DEXAMETHASONE SODIUM PHOSPHATE
     Indication: Prophylaxis
     Dosage: 1 V
     Route: 051
     Dates: start: 20181001, end: 20181001
  140. DEXAMETHASONE SODIUM PHOSPHATE [Concomitant]
     Active Substance: DEXAMETHASONE SODIUM PHOSPHATE
     Dosage: 2 A
     Route: 051
     Dates: start: 20181001, end: 20181001

REACTIONS (2)
  - Septic shock [Fatal]
  - Lymphoma [Fatal]

NARRATIVE: CASE EVENT DATE: 20181010
